FAERS Safety Report 18763577 (Version 6)
Quarter: 2021Q2

REPORT INFORMATION
  Report Type: Spontaneous
  Country: US (occurrence: US)
  Receive Date: 20210120
  Receipt Date: 20210617
  Transmission Date: 20210717
  Serious: No
  Sender: FDA-Public Use
  Company Number: US-GLAXOSMITHKLINE-US2021AMR008772

PATIENT
  Sex: Female

DRUGS (4)
  1. ZEJULA [Suspect]
     Active Substance: NIRAPARIB
     Dosage: UNK UNK, QOD, 100MG ALTERNATING WITH 200 MG EVERY OTHER DAY)
     Route: 048
  2. VITAMIN B12 [Concomitant]
     Active Substance: CYANOCOBALAMIN
     Indication: PRODUCT USED FOR UNKNOWN INDICATION
     Dosage: UNK
  3. ZEJULA [Suspect]
     Active Substance: NIRAPARIB
     Indication: OVARIAN CANCER
     Dosage: 200 MG, QD
     Route: 065
     Dates: start: 20210106, end: 20210129
  4. ZEJULA [Suspect]
     Active Substance: NIRAPARIB
     Dosage: UNK (100MG ALT 200MG QOD)
     Route: 048

REACTIONS (11)
  - Nausea [Unknown]
  - Insomnia [Recovering/Resolving]
  - Fatigue [Not Recovered/Not Resolved]
  - Tumour marker increased [Not Recovered/Not Resolved]
  - Sluggishness [Unknown]
  - Haemoglobin decreased [Unknown]
  - Solar lentigo [Not Recovered/Not Resolved]
  - Platelet count decreased [Recovered/Resolved]
  - Heart rate increased [Unknown]
  - Inappropriate schedule of product administration [Unknown]
  - Hypertension [Unknown]
